FAERS Safety Report 23900308 (Version 1)
Quarter: 2024Q2

REPORT INFORMATION
  Report Type: Spontaneous
  Country: US (occurrence: None)
  Receive Date: 20240526
  Receipt Date: 20240526
  Transmission Date: 20240716
  Serious: No
  Sender: FDA-Public Use
  Company Number: US-ROCHE-3334809

PATIENT
  Age: 36 Year
  Sex: Female
  Weight: 93.524 kg

DRUGS (1)
  1. OCREVUS [Suspect]
     Active Substance: OCRELIZUMAB
     Indication: Multiple sclerosis
     Dosage: LAST INFUSION ON 03/MAY/2023 THEN 600 MG EVERY 6 MONTHS
     Route: 042
     Dates: start: 20230419

REACTIONS (2)
  - Product preparation error [Unknown]
  - No adverse event [Unknown]
